FAERS Safety Report 21079047 (Version 1)
Quarter: 2022Q3

REPORT INFORMATION
  Report Type: Spontaneous
  Country: US (occurrence: US)
  Receive Date: 20220713
  Receipt Date: 20220713
  Transmission Date: 20221027
  Serious: Yes (Other)
  Sender: FDA-Public Use
  Company Number: US-GLENMARK PHARMACEUTICALS-2022GMK072428

PATIENT

DRUGS (1)
  1. ZONISAMIDE [Suspect]
     Active Substance: ZONISAMIDE
     Indication: Epilepsy
     Dosage: UNK
     Route: 048

REACTIONS (8)
  - Seizure [Unknown]
  - Vulvovaginal dryness [Unknown]
  - Palpitations [Unknown]
  - Thirst [Unknown]
  - Urinary tract infection [Unknown]
  - Amnesia [Unknown]
  - Disturbance in attention [Unknown]
  - Drug ineffective [Unknown]
